FAERS Safety Report 9125222 (Version 2)
Quarter: 2013Q1

REPORT INFORMATION
  Report Type: Spontaneous
  Country: US (occurrence: US)
  Receive Date: 20130227
  Receipt Date: 20130319
  Transmission Date: 20140127
  Serious: Yes (Other)
  Sender: FDA-Public Use
  Company Number: US-TEVA-388419USA

PATIENT
  Sex: Female

DRUGS (1)
  1. TRAZODONE [Suspect]
     Indication: INSOMNIA

REACTIONS (1)
  - Coeliac disease [Unknown]
